FAERS Safety Report 4461897-2 (Version None)
Quarter: 2004Q3

REPORT INFORMATION
  Report Type: 
  Country: None (occurrence: None)
  Receive Date: 20040929
  Receipt Date: 20031113
  Transmission Date: 20050211
  Serious: No
  Sender: FDA-Public Use
  Company Number: US-GLAXOSMITHKLINE-A0439619A

PATIENT
  Age: 73 Year
  Sex: Male

DRUGS (3)
  1. SEREVENT [Suspect]
     Indication: ASTHMA
     Dosage: 1PUFF PER DAY
     Route: 055
     Dates: start: 20031112, end: 20031112
  2. THEOPHYLLINE [Concomitant]
  3. CLARINEX [Concomitant]

REACTIONS (1)
  - DYSPNOEA [None]
